FAERS Safety Report 8525929-4 (Version None)
Quarter: 2012Q3

REPORT INFORMATION
  Report Type: 
  Country: None (occurrence: None)
  Receive Date: 20120720
  Receipt Date: 20120717
  Transmission Date: 20120928
  Serious: No
  Sender: FDA-Public Use
  Company Number: US-PFIZER INC-2012104108

PATIENT
  Sex: Male
  Weight: 81.633 kg

DRUGS (2)
  1. ADVIL CONGESTION RELIEF [Suspect]
     Indication: HYPERSENSITIVITY
     Dosage: 200/10 MG, 2X/DAY
     Route: 048
     Dates: start: 20120425, end: 20120426
  2. ADVIL CONGESTION RELIEF [Suspect]
     Indication: NASAL CONGESTION

REACTIONS (1)
  - DRUG INEFFECTIVE [None]
